FAERS Safety Report 17757776 (Version 14)
Quarter: 2021Q3

REPORT INFORMATION
  Report Type: Report from Study
  Country: CA (occurrence: CA)
  Receive Date: 20200507
  Receipt Date: 20210917
  Transmission Date: 20211014
  Serious: Yes (Hospitalization, Disabling, Congenital Anomaly, Other)
  Sender: FDA-Public Use
  Company Number: NVSC2020CA122648

PATIENT
  Age: 33 Year
  Sex: Female
  Weight: 116.1 kg

DRUGS (9)
  1. TYLENOL [Concomitant]
     Active Substance: ACETAMINOPHEN
     Indication: MIGRAINE
     Dosage: UNK
     Route: 065
     Dates: start: 20200423
  2. VITAMIN C [Concomitant]
     Active Substance: ASCORBIC ACID
     Indication: VITAMIN SUPPLEMENTATION
     Dosage: UNK
     Route: 065
     Dates: start: 20180418, end: 20200420
  3. PLACEBO [Suspect]
     Active Substance: UNSPECIFIED INGREDIENT
     Indication: RELAPSING MULTIPLE SCLEROSIS
     Dosage: UNK
     Route: 058
     Dates: start: 20191002
  4. OFATUMUMAB [Suspect]
     Active Substance: OFATUMUMAB
     Indication: RELAPSING MULTIPLE SCLEROSIS
     Dosage: 20 MG, Q4W
     Route: 058
     Dates: start: 20190925, end: 20200411
  5. MAGNESIUM [Concomitant]
     Active Substance: MAGNESIUM
     Indication: VITAMIN SUPPLEMENTATION
     Dosage: UNK
     Route: 065
     Dates: start: 20180418, end: 20200420
  6. ADVIL [Concomitant]
     Active Substance: IBUPROFEN
     Indication: ABDOMINAL PAIN
     Dosage: UNK
     Route: 065
     Dates: start: 20200420, end: 20200423
  7. ADVIL [Concomitant]
     Active Substance: IBUPROFEN
     Indication: MIGRAINE
  8. ECHINACEA [Concomitant]
     Active Substance: ECHINACEA, UNSPECIFIED
     Indication: LOWER RESPIRATORY TRACT INFECTION
     Dosage: UNK
     Route: 065
     Dates: start: 20191015, end: 20200420
  9. VITAMIN B12 [Concomitant]
     Active Substance: CYANOCOBALAMIN
     Indication: VITAMIN SUPPLEMENTATION
     Dosage: UNK
     Route: 065
     Dates: start: 20171110, end: 20200420

REACTIONS (5)
  - Mesenteric vein thrombosis [Recovered/Resolved]
  - Thrombosis [Unknown]
  - Appendicitis [Unknown]
  - Appendicitis perforated [Recovered/Resolved]
  - Abscess [Recovered/Resolved]

NARRATIVE: CASE EVENT DATE: 20200428
